FAERS Safety Report 16873845 (Version 1)
Quarter: 2019Q4

REPORT INFORMATION
  Report Type: Report from Study
  Country: US (occurrence: US)
  Receive Date: 20191001
  Receipt Date: 20191001
  Transmission Date: 20200122
  Serious: Yes (Other)
  Sender: FDA-Public Use
  Company Number: US-EISAI MEDICAL RESEARCH-EC-2019-062693

PATIENT
  Sex: Male

DRUGS (1)
  1. LENVIMA [Suspect]
     Active Substance: LENVATINIB
     Indication: HEPATIC CANCER
     Dosage: UNKNOWN
     Route: 048
     Dates: start: 2019

REACTIONS (9)
  - Gastrointestinal haemorrhage [Unknown]
  - Pulmonary embolism [Unknown]
  - Diabetes mellitus [Unknown]
  - Fatigue [Unknown]
  - Aphonia [Unknown]
  - Thyroid function test abnormal [Unknown]
  - Product packaging difficult to open [Unknown]
  - Hypertension [Unknown]
  - Renal disorder [Unknown]

NARRATIVE: CASE EVENT DATE: 2019
